FAERS Safety Report 6022768-3 (Version None)
Quarter: 2008Q4

REPORT INFORMATION
  Report Type: 
  Country: None (occurrence: None)
  Receive Date: 20081221
  Receipt Date: 20081221
  Transmission Date: 20090506
  Serious: Yes (Hospitalization)
  Sender: FDA-Public Use
  Company Number: None

PATIENT
  Age: 17 Year
  Sex: Male
  Weight: 34.5 kg

DRUGS (9)
  1. BOTOX [Suspect]
     Indication: SALIVARY HYPERSECRETION
     Dosage: 90 UNITS SUBMANDIBULAR ONCE OTHER
     Dates: start: 20081008, end: 20081008
  2. DEPAKOTE [Concomitant]
  3. ROBUNIL [Concomitant]
  4. NEURONTIN [Concomitant]
  5. COLACE [Concomitant]
  6. KLONOPIN [Concomitant]
  7. SEROQUEL [Concomitant]
  8. PREVACID [Concomitant]
  9. ALBUTEROL [Concomitant]

REACTIONS (4)
  - DYSPHAGIA [None]
  - HYPOPHAGIA [None]
  - PNEUMONIA ASPIRATION [None]
  - WEIGHT DECREASED [None]
